FAERS Safety Report 12520387 (Version 2)
Quarter: 2016Q3

REPORT INFORMATION
  Report Type: Spontaneous
  Country: JP (occurrence: JP)
  Receive Date: 20160701
  Receipt Date: 20160802
  Transmission Date: 20161109
  Serious: Yes (Other)
  Sender: FDA-Public Use
  Company Number: JP-009507513-1606JPN012419

PATIENT
  Sex: Male

DRUGS (2)
  1. ESLAX INTRAVENOUS 25MG/2.5ML [Suspect]
     Active Substance: ROCURONIUM BROMIDE
     Dosage: DAILY DOSAGE UNKNOWN
     Route: 042
     Dates: end: 201605
  2. BRIDION [Suspect]
     Active Substance: SUGAMMADEX
     Dosage: DAILY DOSAGE UNKNOWN
     Route: 042
     Dates: end: 201605

REACTIONS (1)
  - Hypoventilation [Recovered/Resolved]

NARRATIVE: CASE EVENT DATE: 201605
